FAERS Safety Report 16980062 (Version 2)
Quarter: 2019Q4

REPORT INFORMATION
  Report Type: Report from Study
  Country: BR (occurrence: BR)
  Receive Date: 20191031
  Receipt Date: 20191111
  Transmission Date: 20200122
  Serious: Yes (Hospitalization, Other)
  Sender: FDA-Public Use
  Company Number: PHHY2017BR171850

PATIENT
  Age: 70 Year
  Sex: Female
  Weight: 98 kg

DRUGS (21)
  1. SANDOSTATIN LAR DEPOT [Suspect]
     Active Substance: OCTREOTIDE ACETATE
     Dosage: 40 MG, QMO (TWO DOSES OF 20 MG LEFT AND RIGHT SIDES)
     Route: 030
     Dates: start: 20190814
  2. SANDOSTATIN LAR DEPOT [Suspect]
     Active Substance: OCTREOTIDE ACETATE
     Dosage: 30 MG, UNK
     Route: 065
  3. CARDIZEM [Concomitant]
     Active Substance: DILTIAZEM HYDROCHLORIDE
     Indication: CARDIAC DISORDER
     Dosage: 1 DF, QD
     Route: 065
  4. CEDUR [Concomitant]
     Active Substance: BEZAFIBRATE
     Indication: BLOOD CHOLESTEROL
     Dosage: 1 DF, QD (AT MORNING)
     Route: 065
  5. RANITIDINE. [Concomitant]
     Active Substance: RANITIDINE
     Indication: GASTROINTESTINAL DISORDER
     Dosage: 1 DF, QD (MORNING)
     Route: 065
  6. GLIMEPIRIDA [Concomitant]
     Active Substance: GLIMEPIRIDE
     Indication: BLOOD CHOLESTEROL
     Dosage: 1 DF, QD (MORNING)
     Route: 065
  7. FORXIGA [Concomitant]
     Active Substance: DAPAGLIFLOZIN
     Indication: DIABETES MELLITUS
     Dosage: 1 DF, QD (MORNING)
     Route: 065
  8. CLOPIDOGREL [Concomitant]
     Active Substance: CLOPIDOGREL BISULFATE
     Indication: ANTICOAGULANT THERAPY
     Dosage: 1 DF, QD (AFTER LUNCH)
     Route: 065
     Dates: start: 20190912
  9. SANDOSTATIN LAR DEPOT [Suspect]
     Active Substance: OCTREOTIDE ACETATE
     Dosage: 30 MG, QMO
     Route: 030
     Dates: start: 2008
  10. SANDOSTATIN LAR DEPOT [Suspect]
     Active Substance: OCTREOTIDE ACETATE
     Dosage: 40 MG, QMO (TWO DOSES OF 20 MG LEFT AND RIGHT SIDES)
     Route: 030
     Dates: start: 20190925
  11. SANDOSTATIN LAR DEPOT [Suspect]
     Active Substance: OCTREOTIDE ACETATE
     Dosage: 40 MG, QMO (TWO DOSES OF 20 MG LEFT AND RIGHT SIDES)
     Route: 030
     Dates: start: 20191023
  12. ATENOLOL. [Concomitant]
     Active Substance: ATENOLOL
     Indication: CARDIAC DISORDER
     Dosage: 1 DF, QD
     Route: 048
  13. ALPRAZOLAM. [Concomitant]
     Active Substance: ALPRAZOLAM
     Indication: PANIC DISORDER
  14. METFORMINA [Concomitant]
     Active Substance: METFORMIN HYDROCHLORIDE
     Indication: DIABETES MELLITUS
     Dosage: 2 DF, Q12H
     Route: 065
  15. ALPRAZOLAM. [Concomitant]
     Active Substance: ALPRAZOLAM
     Indication: ANXIETY
     Dosage: 1 DF, BID
     Route: 065
  16. SANDOSTATIN LAR DEPOT [Suspect]
     Active Substance: OCTREOTIDE ACETATE
     Dosage: 40 MG, QMO (TWO DOSES OF 20 MG)
     Route: 030
     Dates: start: 20141119
  17. SANDOSTATIN LAR DEPOT [Suspect]
     Active Substance: OCTREOTIDE ACETATE
     Dosage: 40 MG, QMO (TWO DOSES OF 20 MG LEFT AND RIGHT SIDES)
     Route: 030
     Dates: start: 20190717
  18. FLAVONID [Concomitant]
     Indication: BLOOD CHOLESTEROL
     Dosage: 1 DF, QD
     Route: 065
  19. RIVOTRIL [Concomitant]
     Active Substance: CLONAZEPAM
     Indication: PANIC ATTACK
     Dosage: 1 DF
     Route: 065
  20. SANDOSTATIN LAR DEPOT [Suspect]
     Active Substance: OCTREOTIDE ACETATE
     Indication: ACROMEGALY
     Dosage: 40 MG, UNK
     Route: 065
     Dates: start: 200801
  21. FLUOXETINA [Concomitant]
     Active Substance: FLUOXETINE HYDROCHLORIDE
     Indication: ANXIETY
     Dosage: 1 DF, QHS
     Route: 065

REACTIONS (49)
  - Asphyxia [Recovered/Resolved]
  - Deafness [Unknown]
  - Hypertension [Unknown]
  - Blood cholesterol increased [Unknown]
  - Cold sweat [Recovered/Resolved]
  - Fatigue [Not Recovered/Not Resolved]
  - Peripheral swelling [Unknown]
  - Hypersensitivity [Recovering/Resolving]
  - Asphyxia [Unknown]
  - Back pain [Recovered/Resolved]
  - Blood growth hormone increased [Recovered/Resolved]
  - Lip swelling [Recovered/Resolved]
  - Heart rate increased [Unknown]
  - Product dose omission [Unknown]
  - Hypertension [Not Recovered/Not Resolved]
  - Hypothalamo-pituitary disorder [Unknown]
  - Gait disturbance [Recovering/Resolving]
  - Erythema [Recovered/Resolved]
  - Peripheral swelling [Recovered/Resolved]
  - Pruritus [Recovered/Resolved]
  - Malaise [Unknown]
  - Memory impairment [Not Recovered/Not Resolved]
  - Erythema [Recovered/Resolved]
  - Blood growth hormone increased [Unknown]
  - Blood glucose increased [Unknown]
  - Eye pruritus [Unknown]
  - Lip swelling [Unknown]
  - Depression [Unknown]
  - Body height decreased [Unknown]
  - Pain [Recovered/Resolved]
  - Cold sweat [Unknown]
  - Heart rate increased [Recovered/Resolved]
  - Pruritus [Recovered/Resolved]
  - Blood glucose increased [Recovered/Resolved]
  - Hypersensitivity [Recovered/Resolved]
  - Pruritus [Unknown]
  - Peripheral swelling [Unknown]
  - Erythema [Unknown]
  - Hypertension [Recovered/Resolved]
  - Arthralgia [Recovered/Resolved]
  - Dizziness [Unknown]
  - Lip swelling [Recovering/Resolving]
  - Eye pruritus [Recovered/Resolved]
  - Mouth swelling [Recovering/Resolving]
  - Diabetic complication [Unknown]
  - Limb discomfort [Unknown]
  - Crying [Unknown]
  - Feeling abnormal [Unknown]
  - Pain in extremity [Recovered/Resolved]

NARRATIVE: CASE EVENT DATE: 20190829
